FAERS Safety Report 15574086 (Version 3)
Quarter: 2018Q4

REPORT INFORMATION
  Report Type: Report from Study
  Country: None (occurrence: CN)
  Receive Date: 20181101
  Receipt Date: 20181205
  Transmission Date: 20190205
  Serious: Yes (Hospitalization)
  Sender: FDA-Public Use
  Company Number: CN-ABBVIE-18P-035-2540387-00

PATIENT
  Age: 6 Year
  Sex: Female
  Weight: 21 kg

DRUGS (6)
  1. ENANTONE LP [Suspect]
     Active Substance: LEUPROLIDE ACETATE
     Dosage: 2.8 MG, UNK
     Route: 030
     Dates: start: 20150515, end: 20160422
  2. ENANTONE LP [Suspect]
     Active Substance: LEUPROLIDE ACETATE
     Indication: PRODUCT USED FOR UNKNOWN INDICATION
     Dosage: 3.75 MG, UNK
     Route: 030
     Dates: start: 201504, end: 201504
  3. ENANTONE LP [Suspect]
     Active Substance: LEUPROLIDE ACETATE
     Dosage: 2.3 MG, UNK
     Route: 030
     Dates: start: 20160513, end: 20170113
  4. ENANTONE LP [Suspect]
     Active Substance: LEUPROLIDE ACETATE
     Dosage: 3 MG, UNK
     Route: 030
     Dates: start: 20170313, end: 20170908
  5. ENANTONE LP [Suspect]
     Active Substance: LEUPROLIDE ACETATE
     Dosage: 2.2 MG, UNK
     Route: 030
     Dates: start: 20170219, end: 20170219
  6. ENANTONE LP [Suspect]
     Active Substance: LEUPROLIDE ACETATE
     Dosage: UNK
     Route: 030
     Dates: start: 20171027, end: 20171027

REACTIONS (1)
  - Pneumonia [Recovered/Resolved]

NARRATIVE: CASE EVENT DATE: 20151112
